FAERS Safety Report 7338542-1 (Version None)
Quarter: 2011Q1

REPORT INFORMATION
  Report Type: 
  Country: None (occurrence: None)
  Receive Date: 20110308
  Receipt Date: 20110303
  Transmission Date: 20110831
  Serious: Yes (Other)
  Sender: FDA-Public Use
  Company Number: US-PFIZER INC-2011047660

PATIENT
  Sex: Female

DRUGS (5)
  1. GABAPENTIN [Suspect]
     Indication: BACK INJURY
     Dosage: 240 MG, 1X/DAY
     Route: 048
     Dates: start: 20101201
  2. HYDROCODONE BITARTRATE [Suspect]
     Indication: BACK INJURY
     Dosage: UNK
     Dates: start: 20101001
  3. FLEXERIL [Suspect]
     Indication: BACK INJURY
     Dosage: 5 MG, 3X/DAY
     Route: 048
     Dates: start: 20101001
  4. VICOPROFEN [Suspect]
     Indication: BACK INJURY
     Dosage: 7.5/200
     Route: 048
     Dates: start: 20101001
  5. CHANTIX [Suspect]
     Indication: SMOKING CESSATION THERAPY
     Dosage: UNK
     Route: 048
     Dates: start: 20110220

REACTIONS (2)
  - BACK PAIN [None]
  - INHIBITORY DRUG INTERACTION [None]
